FAERS Safety Report 7253894-9 (Version None)
Quarter: 2011Q1

REPORT INFORMATION
  Report Type: 
  Country: None (occurrence: None)
  Receive Date: 20110129
  Receipt Date: 20100412
  Transmission Date: 20110831
  Serious: No
  Sender: FDA-Public Use
  Company Number: US-ABBOTT-10P-163-0638818-00

PATIENT
  Sex: Female

DRUGS (2)
  1. HUMIRA [Suspect]
     Indication: RHEUMATOID ARTHRITIS
     Route: 058
     Dates: start: 20091001, end: 20100101
  2. HUMIRA [Suspect]
     Route: 058
     Dates: start: 20100301

REACTIONS (8)
  - DRUG INEFFECTIVE [None]
  - INJECTION SITE PAIN [None]
  - NASOPHARYNGITIS [None]
  - OSTEOARTHRITIS [None]
  - FATIGUE [None]
  - DYSGEUSIA [None]
  - FEELING ABNORMAL [None]
  - RHEUMATOID ARTHRITIS [None]
